FAERS Safety Report 21722666 (Version 2)
Quarter: 2023Q1

REPORT INFORMATION
  Report Type: Spontaneous
  Country: US (occurrence: US)
  Receive Date: 20221213
  Receipt Date: 20230125
  Transmission Date: 20230418
  Serious: Yes (Hospitalization)
  Sender: FDA-Public Use
  Company Number: US-INTRA-CELLULAR THERAPIES, INC.-2022ICT01709

PATIENT
  Age: 20 Year
  Sex: Female

DRUGS (2)
  1. CAPLYTA [Suspect]
     Active Substance: LUMATEPERONE
     Indication: Bipolar disorder
     Dosage: 42 MG, 1X/DAY
     Route: 048
     Dates: start: 20221102, end: 20221127
  2. HYDROXYZINE [Concomitant]
     Active Substance: HYDROXYZINE HYDROCHLORIDE
     Dosage: 25 MG, AS NEEDED
     Dates: start: 202208

REACTIONS (8)
  - Psychotic disorder [Recovered/Resolved]
  - Mania [Recovered/Resolved]
  - Memory impairment [Recovered/Resolved]
  - Anxiety [Unknown]
  - Incoherent [Recovered/Resolved]
  - Disorientation [Recovered/Resolved]
  - Paranoia [Recovered/Resolved]
  - Somnolence [Recovered/Resolved]

NARRATIVE: CASE EVENT DATE: 20221101
